FAERS Safety Report 23905639 (Version 1)
Quarter: 2024Q2

REPORT INFORMATION
  Report Type: Spontaneous
  Country: CN (occurrence: CN)
  Receive Date: 20240527
  Receipt Date: 20240527
  Transmission Date: 20240716
  Serious: Yes (Disabling, Other)
  Sender: FDA-Public Use
  Company Number: CN-PFIZER INC-PV202400067966

PATIENT
  Age: 64 Year
  Sex: Male
  Weight: 66 kg

DRUGS (11)
  1. CYTARABINE [Suspect]
     Active Substance: CYTARABINE
     Indication: Mantle cell lymphoma stage IV
     Dosage: 5.3 G, 2X/DAY
     Route: 041
     Dates: start: 20240508, end: 20240510
  2. METHOTREXATE SODIUM [Suspect]
     Active Substance: METHOTREXATE SODIUM
     Indication: Mantle cell lymphoma stage IV
     Dosage: 1.77 G, 1X/DAY
     Route: 041
     Dates: start: 20240508, end: 20240508
  3. RITUXIMAB [Suspect]
     Active Substance: RITUXIMAB
     Indication: Mantle cell lymphoma stage IV
     Dosage: 100 MG, 1X/DAY
     Route: 041
     Dates: start: 20240507, end: 20240507
  4. RITUXIMAB [Suspect]
     Active Substance: RITUXIMAB
     Dosage: 500 MG, 1X/DAY
     Route: 041
     Dates: start: 20240507, end: 20240507
  5. RITUXIMAB [Suspect]
     Active Substance: RITUXIMAB
     Dosage: 100 MG, 1X/DAY
     Route: 041
     Dates: start: 20240507, end: 20240507
  6. ORELABRUTINIB [Suspect]
     Active Substance: ORELABRUTINIB
     Indication: Mantle cell lymphoma stage IV
     Dosage: 150 MG, 1X/DAY
     Route: 048
     Dates: start: 20240510, end: 20240520
  7. SODIUM CHLORIDE [Concomitant]
     Active Substance: SODIUM CHLORIDE
     Indication: Mantle cell lymphoma stage IV
     Dosage: 100 ML, 1X/DAY
     Route: 041
     Dates: start: 20240507, end: 20240507
  8. SODIUM CHLORIDE [Concomitant]
     Active Substance: SODIUM CHLORIDE
     Dosage: 100 ML, 1X/DAY
     Route: 041
     Dates: start: 20240507, end: 20240507
  9. SODIUM CHLORIDE [Concomitant]
     Active Substance: SODIUM CHLORIDE
     Indication: Mantle cell lymphoma stage IV
     Dosage: 500 ML, 1X/DAY
     Route: 041
     Dates: start: 20240507, end: 20240507
  10. SODIUM CHLORIDE [Concomitant]
     Active Substance: SODIUM CHLORIDE
     Dosage: 500 ML, 1X/DAY
     Route: 041
     Dates: start: 20240508, end: 20240510
  11. DEXTROSE [Concomitant]
     Active Substance: DEXTROSE\DEXTROSE MONOHYDRATE
     Indication: Mantle cell lymphoma
     Dosage: 500 ML, 1X/DAY
     Route: 041
     Dates: start: 20240508, end: 20240508

REACTIONS (3)
  - White blood cell count decreased [Recovering/Resolving]
  - Granulocyte count decreased [Recovering/Resolving]
  - Myelosuppression [Unknown]

NARRATIVE: CASE EVENT DATE: 20240515
